FAERS Safety Report 5373920-1 (Version None)
Quarter: 2007Q2

REPORT INFORMATION
  Report Type: 
  Country: None (occurrence: None)
  Receive Date: 20070628
  Receipt Date: 20070625
  Transmission Date: 20071010
  Serious: Yes (Death)
  Sender: FDA-Public Use
  Company Number: FR-BOEHRINGER INGELHEIM PHARMACEUTICALS, INC.-2007-FF-00724FF

PATIENT
  Age: 67 Year
  Sex: Male

DRUGS (2)
  1. SPIRIVA [Suspect]
     Route: 055
  2. ANTIHYPERTENSIVE DRUGS [Concomitant]
     Indication: HYPERTENSION

REACTIONS (2)
  - CARDIAC DISORDER [None]
  - CHEST PAIN [None]
